FAERS Safety Report 6843531-7 (Version None)
Quarter: 2010Q3

REPORT INFORMATION
  Report Type: 
  Country: None (occurrence: None)
  Receive Date: 20100712
  Receipt Date: 20081120
  Transmission Date: 20110219
  Serious: Yes (Other)
  Sender: FDA-Public Use
  Company Number: 635884

PATIENT
  Age: 51 Year
  Sex: Female
  Weight: 69 kg

DRUGS (8)
  1. PRECEDEX [Suspect]
     Indication: SEDATIVE THERAPY
     Dosage: .2 ?G/KG MICROGRAM(S) /KILOGRAM, INTRAVENOUS; .2 ?G/KG MICROGRAM(S) /KILOGRAM (1 HOUR) INTRAVENOUS
     Route: 042
     Dates: start: 20080521, end: 20080521
  2. PRECEDEX [Suspect]
     Indication: SEDATIVE THERAPY
     Dosage: .2 ?G/KG MICROGRAM(S) /KILOGRAM, INTRAVENOUS; .2 ?G/KG MICROGRAM(S) /KILOGRAM (1 HOUR) INTRAVENOUS
     Route: 042
     Dates: start: 20080521, end: 20080521
  3. MIDAZOLAM HCL [Concomitant]
  4. NALBUPHINE HYDROCHLORIDE [Concomitant]
  5. HYDROXYZINE HYDROCHLORIDE [Concomitant]
  6. DESFLURANE [Concomitant]
  7. PROPOFOL [Concomitant]
  8. (ROCURONIUM) [Concomitant]

REACTIONS (2)
  - BRADYCARDIA [None]
  - ELECTROCARDIOGRAM ST SEGMENT DEPRESSION [None]
